FAERS Safety Report 7649900-X (Version None)
Quarter: 2011Q3

REPORT INFORMATION
  Report Type: 
  Country: None (occurrence: None)
  Receive Date: 20110802
  Receipt Date: 20110718
  Transmission Date: 20111222
  Serious: Yes (Hospitalization, Other)
  Sender: FDA-Public Use
  Company Number: US-ELI_LILLY_AND_COMPANY-US201106002071

PATIENT
  Sex: Female
  Weight: 49.887 kg

DRUGS (25)
  1. FISH OIL [Concomitant]
     Dosage: 1200 MG, EACH MORNING
  2. SENOKOT [Concomitant]
     Dosage: UNK UNK, BID
  3. SYNTHROID [Concomitant]
     Dosage: 25 UG, QD
  4. CENTURY [Concomitant]
     Dosage: 1 DF, QD
  5. ASPIRIN [Concomitant]
     Dosage: 81 MG, QD
  6. FERROUS SULFATE TAB [Concomitant]
     Dosage: 2 DF, QD
  7. REMERON [Concomitant]
     Dosage: 15 MG, QD
  8. CALCIUM ACETATE [Concomitant]
     Dosage: 1200 MG, BID
  9. FORTEO [Suspect]
     Indication: OSTEOPOROSIS
     Dosage: 20 UG, QD
     Route: 030
     Dates: start: 20101122
  10. FERROUS SULFATE TAB [Concomitant]
     Dosage: 130 MG, QD
  11. NORCO [Concomitant]
     Dosage: 665 MG, EVERY 4 HRS
  12. GLUCOSAMINE CHONDROITIN [Concomitant]
     Dosage: 1 DF, QD
  13. KEFLEX [Concomitant]
     Dosage: 500 MG, UNKNOWN
  14. ANTIBIOTICS [Concomitant]
  15. ASCORBIC ACID [Concomitant]
     Dosage: 1000 MG, EACH MORNING
  16. LIDODERM [Concomitant]
     Dosage: 5 %, BID
  17. SYNTHROID [Concomitant]
     Dosage: 50 UG, EACH MORNING
  18. LOTENSIN [Concomitant]
     Dosage: 10 MG, EACH MORNING
  19. VITAMIN E [Concomitant]
     Dosage: 400 IU, EACH MORNING
  20. GLUCOSAMINE CHONDROITIN [Concomitant]
     Dosage: 1 UNK, BID
  21. NORCO [Concomitant]
     Indication: PAIN
     Dosage: 1 DF, QD
  22. TEARS NATURALE [Concomitant]
  23. MAGNESIUM OXIDE [Concomitant]
     Dosage: 400 MG, EACH MORNING
  24. NORVASC [Concomitant]
     Dosage: 5 MG, QD
  25. VITAMIN B-12 [Concomitant]
     Dosage: 1 DF, 2/M

REACTIONS (21)
  - BREAST CANCER STAGE I [None]
  - FEELING ABNORMAL [None]
  - URINARY TRACT INFECTION [None]
  - MITRAL VALVE INCOMPETENCE [None]
  - ARTHRALGIA [None]
  - HEART RATE DECREASED [None]
  - INCISION SITE HAEMORRHAGE [None]
  - PULSE PRESSURE DECREASED [None]
  - ABASIA [None]
  - DIZZINESS [None]
  - BREAST MASS [None]
  - CARDIOMYOPATHY [None]
  - VENTRICULAR HYPERTROPHY [None]
  - HAEMATOMA [None]
  - PRESYNCOPE [None]
  - LOSS OF CONSCIOUSNESS [None]
  - OBSTRUCTION [None]
  - PALLOR [None]
  - HEART RATE IRREGULAR [None]
  - EXTRASYSTOLES [None]
  - NAUSEA [None]
